FAERS Safety Report 8850643 (Version 1)
Quarter: 2012Q4

REPORT INFORMATION
  Report Type: 
  Country: US (occurrence: US)
  Receive Date: 20121019
  Receipt Date: 20121019
  Transmission Date: 20130627
  Serious: No
  Sender: FDA-Public Use
  Company Number: US-ASTRAZENECA-2012SE79345

PATIENT
  Age: 52 Year
  Sex: Male

DRUGS (1)
  1. TOPROL XL [Suspect]
     Route: 048

REACTIONS (6)
  - Back disorder [Unknown]
  - Limb discomfort [Unknown]
  - Adverse event [Unknown]
  - Road traffic accident [Unknown]
  - Accident at work [Unknown]
  - Visual impairment [Unknown]
